FAERS Safety Report 5869683-3 (Version None)
Quarter: 2008Q3

REPORT INFORMATION
  Report Type: 
  Country: None (occurrence: None)
  Receive Date: 20080904
  Receipt Date: 20080828
  Transmission Date: 20090109
  Serious: Yes (Hospitalization)
  Sender: FDA-Public Use
  Company Number: IL-ABBOTT-08P-082-0469575-00

PATIENT
  Sex: Female

DRUGS (4)
  1. HUMIRA [Suspect]
     Indication: JUVENILE ARTHRITIS
     Route: 058
     Dates: start: 20080201
  2. HUMIRA [Suspect]
     Indication: UVEITIS
  3. METHOTREXATE SODIUM [Concomitant]
     Indication: JUVENILE ARTHRITIS
     Route: 048
     Dates: start: 20060101
  4. METHOTREXATE SODIUM [Concomitant]
     Indication: UVEITIS

REACTIONS (2)
  - LYMPHADENOPATHY [None]
  - PYREXIA [None]
